FAERS Safety Report 22151454 (Version 1)
Quarter: 2023Q1

REPORT INFORMATION
  Report Type: Spontaneous
  Country: US (occurrence: None)
  Receive Date: 20230328
  Receipt Date: 20230328
  Transmission Date: 20230418
  Serious: No
  Sender: FDA-Public Use
  Company Number: None

PATIENT
  Age: 48 Year
  Sex: Female

DRUGS (1)
  1. ASTEPRO [Suspect]
     Active Substance: AZELASTINE HYDROCHLORIDE
     Indication: Multiple allergies
     Dosage: OTHER ROUTE : NASAL SPRAY;?
     Route: 050
     Dates: start: 20230318, end: 20230326

REACTIONS (4)
  - Application site pain [None]
  - Application site pruritus [None]
  - Taste disorder [None]
  - Parosmia [None]

NARRATIVE: CASE EVENT DATE: 20230326
